FAERS Safety Report 5242201-9 (Version None)
Quarter: 2007Q1

REPORT INFORMATION
  Report Type: 
  Country: None (occurrence: None)
  Receive Date: 20070213
  Receipt Date: 20070202
  Transmission Date: 20070707
  Serious: Yes (Other)
  Sender: FDA-Public Use
  Company Number: CHNY2007DE00801

PATIENT

DRUGS (1)
  1. NICOTINE [Suspect]
     Dosage: 21 MG, QD, TRANSDERMAL
     Route: 062
     Dates: start: 20070101, end: 20070101

REACTIONS (4)
  - DIZZINESS [None]
  - HEADACHE [None]
  - HYPERTENSION [None]
  - SPEECH DISORDER [None]
